FAERS Safety Report 7787852-2 (Version None)
Quarter: 2011Q3

REPORT INFORMATION
  Report Type: 
  Country: None (occurrence: None)
  Receive Date: 20110930
  Receipt Date: 20110920
  Transmission Date: 20111222
  Serious: No
  Sender: FDA-Public Use
  Company Number: US-BIOGENIDEC-2011BI006149

PATIENT
  Age: 59 Year
  Sex: Female

DRUGS (2)
  1. TYSABRI [Suspect]
     Indication: MULTIPLE SCLEROSIS
     Route: 042
     Dates: start: 20101117, end: 20110307
  2. AVONEX [Concomitant]
     Indication: MULTIPLE SCLEROSIS
     Route: 030
     Dates: start: 20031021, end: 20101010

REACTIONS (9)
  - PALPITATIONS [None]
  - MULTIPLE SCLEROSIS RELAPSE [None]
  - CHEST DISCOMFORT [None]
  - CYANOSIS [None]
  - CHEST PAIN [None]
  - PROCEDURAL COMPLICATION [None]
  - DYSPNOEA [None]
  - PAIN IN EXTREMITY [None]
  - NECK PAIN [None]
